FAERS Safety Report 13852491 (Version 1)
Quarter: 2017Q3

REPORT INFORMATION
  Report Type: Spontaneous
  Country: US (occurrence: US)
  Receive Date: 20170809
  Receipt Date: 20170809
  Transmission Date: 20171127
  Serious: No
  Sender: FDA-Public Use
  Company Number: US-ROCHE-621973

PATIENT
  Age: 61 Year
  Sex: Female

DRUGS (1)
  1. BONIVA [Suspect]
     Active Substance: IBANDRONATE SODIUM
     Indication: OSTEOPOROSIS
     Route: 065

REACTIONS (8)
  - Dizziness [Unknown]
  - Feeling cold [Unknown]
  - Asthenia [Unknown]
  - Influenza like illness [Unknown]
  - Dyspnoea [Unknown]
  - Pain in extremity [Unknown]
  - Syncope [Unknown]
  - Adverse drug reaction [Unknown]
